FAERS Safety Report 9236500 (Version 1)
Quarter: 2013Q2

REPORT INFORMATION
  Report Type: Spontaneous
  Country: FR (occurrence: FR)
  Receive Date: 20130417
  Receipt Date: 20130417
  Transmission Date: 20140414
  Serious: Yes (Hospitalization, Other)
  Sender: FDA-Public Use
  Company Number: FR-ASTRAZENECA-2013SE23172

PATIENT
  Age: 3390 Week
  Sex: Male

DRUGS (7)
  1. ZESTORETIC [Suspect]
     Indication: HYPERTENSION
     Route: 048
     Dates: end: 20130305
  2. PREVISCAN [Concomitant]
     Indication: ATRIAL FIBRILLATION
     Dosage: 10 MG EACH EVENING DURING TWO DAYS AND 5 MG THE THIRD DAYS
     Route: 048
  3. DIGOXINE [Concomitant]
     Route: 048
  4. STAGID [Concomitant]
     Indication: TYPE 2 DIABETES MELLITUS
     Route: 048
  5. ATENOLOL [Concomitant]
     Indication: ATRIAL FIBRILLATION
     Route: 048
  6. AMLOR [Concomitant]
     Indication: HYPERTENSION
     Route: 048
  7. DIFFU K [Concomitant]
     Route: 048

REACTIONS (3)
  - Renal failure acute [Recovered/Resolved]
  - Diarrhoea [Unknown]
  - Hypotension [Unknown]
